FAERS Safety Report 5062121-2 (Version None)
Quarter: 2006Q3

REPORT INFORMATION
  Report Type: 
  Country: None (occurrence: None)
  Receive Date: 20060721
  Receipt Date: 20060705
  Transmission Date: 20061208
  Serious: Yes (Disabling, Other)
  Sender: FDA-Public Use
  Company Number: USA0510110385

PATIENT
  Age: 85 Year
  Sex: Female
  Weight: 74.4 kg

DRUGS (11)
  1. FORTEO [Suspect]
     Indication: OSTEOPOROSIS
     Dosage: SEE IMAGE
     Route: 058
     Dates: end: 20060104
  2. FORTEO [Suspect]
     Indication: OSTEOPOROSIS
     Dosage: SEE IMAGE
     Route: 058
     Dates: start: 20050104
  3. FORTEO PEN (FORTEO PEN) PEN, DISPOSABLE [Concomitant]
  4. SYNTHROID [Concomitant]
  5. ATENOLOL [Concomitant]
  6. HYDROCHLOROTHIAZIDE [Concomitant]
  7. RESERPINE [Concomitant]
  8. ASPIRIN [Concomitant]
  9. VITAMIN D [Concomitant]
  10. TEMAZEPAM [Concomitant]
  11. LIPITOR [Concomitant]

REACTIONS (18)
  - ARTHRALGIA [None]
  - ASTHENIA [None]
  - BLOOD CALCIUM INCREASED [None]
  - CHROMATURIA [None]
  - DIZZINESS [None]
  - HYPERPARATHYROIDISM [None]
  - HYPOTONIA [None]
  - LABYRINTHITIS [None]
  - MULTIPLE MYELOMA [None]
  - MUSCULAR WEAKNESS [None]
  - NYSTAGMUS [None]
  - OSTEITIS DEFORMANS [None]
  - PAIN IN EXTREMITY [None]
  - PHARMACEUTICAL PRODUCT COMPLAINT [None]
  - POLLAKIURIA [None]
  - PROTEIN TOTAL INCREASED [None]
  - URINE ODOUR ABNORMAL [None]
  - WEIGHT INCREASED [None]
